FAERS Safety Report 6410761-8 (Version None)
Quarter: 2009Q4

REPORT INFORMATION
  Report Type: 
  Country: None (occurrence: None)
  Receive Date: 20091020
  Receipt Date: 20091020
  Transmission Date: 20100525
  Serious: Yes (Hospitalization, Disabling)
  Sender: FDA-Public Use
  Company Number: None

PATIENT
  Sex: Female
  Weight: 56.8 kg

DRUGS (1)
  1. YAZ [Suspect]
     Indication: CONTRACEPTION
     Dosage: YAZ 28 DAILY ORAL
     Route: 048
     Dates: start: 20070601

REACTIONS (2)
  - BILIARY COLIC [None]
  - SPHINCTER OF ODDI DYSFUNCTION [None]
